FAERS Safety Report 8214284-5 (Version None)
Quarter: 2012Q1

REPORT INFORMATION
  Report Type: 
  Country: None (occurrence: None)
  Receive Date: 20120316
  Receipt Date: 20120307
  Transmission Date: 20120608
  Serious: Yes (Hospitalization, Other)
  Sender: FDA-Public Use
  Company Number: US-BAYER-2012-001218

PATIENT
  Age: 24 Year
  Sex: Female
  Weight: 104.31 kg

DRUGS (9)
  1. ADIPEX [Concomitant]
     Dosage: UNK
     Dates: start: 20100505
  2. BENTYL [Concomitant]
  3. PHENTERMINE [Concomitant]
     Dosage: UNK
     Dates: start: 20100505
  4. YAZ [Suspect]
     Indication: CONTRACEPTION
     Dosage: UNK
     Dates: start: 20080101, end: 20110101
  5. DICYCLOMINE [Concomitant]
     Dosage: UNK
     Dates: start: 20100505
  6. SYNTHROID [Concomitant]
     Indication: HYPOTHYROIDISM
     Dosage: UNK
     Dates: start: 19990101
  7. CLINDAMYCIN [Concomitant]
     Dosage: UNK
     Dates: start: 20100505
  8. PRISTIQ [Concomitant]
     Dosage: UNK
     Dates: start: 20100317
  9. MIRCETTE [Concomitant]
     Dosage: UNK
     Dates: start: 20100505

REACTIONS (10)
  - CHOLECYSTITIS CHRONIC [None]
  - CHOLECYSTECTOMY [None]
  - CHEST PAIN [None]
  - DEPRESSION [None]
  - INJURY [None]
  - PAIN [None]
  - HEADACHE [None]
  - EMOTIONAL DISTRESS [None]
  - FEAR OF DEATH [None]
  - NERVOUSNESS [None]
